FAERS Safety Report 12790539 (Version 2)
Quarter: 2016Q4

REPORT INFORMATION
  Report Type: Report from Study
  Country: US (occurrence: US)
  Receive Date: 20160929
  Receipt Date: 20161025
  Transmission Date: 20170207
  Serious: Yes (Death, Hospitalization)
  Sender: FDA-Public Use
  Company Number: US-ACTELION-A-NJ2016-140407

PATIENT
  Age: 73 Year
  Sex: Female

DRUGS (3)
  1. NORVASC [Concomitant]
     Active Substance: AMLODIPINE BESYLATE
  2. TRACLEER [Suspect]
     Active Substance: BOSENTAN
     Indication: PULMONARY ARTERIAL HYPERTENSION
     Dosage: 125 MG, BID
     Route: 048
     Dates: start: 20110211, end: 201609
  3. VENTAVIS [Suspect]
     Active Substance: ILOPROST
     Indication: PULMONARY ARTERIAL HYPERTENSION
     Dosage: 5 MCG, 5-9X/DAY
     Route: 055
     Dates: start: 20121127, end: 201609

REACTIONS (3)
  - Death [Fatal]
  - Respiratory distress [Unknown]
  - Asthenia [Unknown]

NARRATIVE: CASE EVENT DATE: 201609
